FAERS Safety Report 6347339-0 (Version None)
Quarter: 2009Q3

REPORT INFORMATION
  Report Type: 
  Country: None (occurrence: None)
  Receive Date: 20090910
  Receipt Date: 20090903
  Transmission Date: 20100115
  Serious: Yes (Hospitalization, Other)
  Sender: FDA-Public Use
  Company Number: JP-BAYER-200912220BYL

PATIENT
  Age: 74 Year
  Sex: Male
  Weight: 67 kg

DRUGS (3)
  1. NEXAVAR [Suspect]
     Indication: RENAL CELL CARCINOMA STAGE IV
     Dosage: TOTAL DAILY DOSE: 800 MG  UNIT DOSE: 200 MG
     Route: 048
     Dates: start: 20090409, end: 20090430
  2. NEXAVAR [Suspect]
     Dosage: UNIT DOSE: 200 MG
     Route: 048
     Dates: start: 20090611, end: 20090630
  3. ZOMETA [Suspect]
     Indication: RENAL CELL CARCINOMA STAGE IV
     Dosage: EVERY 4 WEEKS
     Route: 042
     Dates: start: 20090409, end: 20090618

REACTIONS (2)
  - HYPERKALAEMIA [None]
  - PANCYTOPENIA [None]
